FAERS Safety Report 6313150-X (Version None)
Quarter: 2009Q3

REPORT INFORMATION
  Report Type: 
  Country: None (occurrence: None)
  Receive Date: 20090814
  Receipt Date: 20090814
  Transmission Date: 20100115
  Serious: Yes (Other)
  Sender: FDA-Public Use
  Company Number: None

PATIENT
  Age: 33 Year
  Sex: Female
  Weight: 52.1637 kg

DRUGS (2)
  1. LEVAQUIN [Suspect]
     Indication: ORAL INFECTION
     Dosage: 500MG PO
     Route: 048
     Dates: start: 20090709, end: 20090716
  2. LEVAQUIN [Suspect]
     Indication: TOOTH EXTRACTION
     Dosage: 500MG PO
     Route: 048
     Dates: start: 20090709, end: 20090716

REACTIONS (4)
  - ASTHENIA [None]
  - JOINT RANGE OF MOTION DECREASED [None]
  - MUSCULOSKELETAL PAIN [None]
  - TENDONITIS [None]
